FAERS Safety Report 4751357-3 (Version None)
Quarter: 2005Q3

REPORT INFORMATION
  Report Type: 
  Country: None (occurrence: None)
  Receive Date: 20050823
  Receipt Date: 20050823
  Transmission Date: 20060218
  Serious: No
  Sender: FDA-Public Use
  Company Number: None

PATIENT
  Sex: Female

DRUGS (4)
  1. AVONEX [Suspect]
  2. SOLU-MEDROL [Suspect]
  3. REBIF [Suspect]
  4. TYSABRI [Suspect]

REACTIONS (14)
  - ASTHENIA [None]
  - BALANCE DISORDER [None]
  - CONDITION AGGRAVATED [None]
  - DEMYELINATION [None]
  - DISEASE PROGRESSION [None]
  - DISEASE RECURRENCE [None]
  - DRUG INTOLERANCE [None]
  - DYSARTHRIA [None]
  - HYPOAESTHESIA [None]
  - MULTIPLE SCLEROSIS [None]
  - NEUROMYOPATHY [None]
  - PNEUMONIA [None]
  - SENSORY DISTURBANCE [None]
  - SPEECH DISORDER [None]
